FAERS Safety Report 7318361-2 (Version None)
Quarter: 2011Q1

REPORT INFORMATION
  Report Type: 
  Country: None (occurrence: None)
  Receive Date: 20110217
  Receipt Date: 20110217
  Transmission Date: 20110831
  Serious: No
  Sender: FDA-Public Use
  Company Number: None

PATIENT
  Age: 86 Year
  Sex: Male
  Weight: 63.5036 kg

DRUGS (1)
  1. NITROGLYCERIN [Suspect]
     Indication: ANGINA PECTORIS
     Dosage: 1 TAB FOR PAIN 1 PER 5 MIN SL
     Route: 060
     Dates: start: 20110209, end: 20110209

REACTIONS (3)
  - PRODUCT QUALITY ISSUE [None]
  - CHEST PAIN [None]
  - DRUG INEFFECTIVE [None]
